FAERS Safety Report 13737645 (Version 1)
Quarter: 2017Q3

REPORT INFORMATION
  Report Type: Report from Study
  Country: US (occurrence: US)
  Receive Date: 20170710
  Receipt Date: 20170710
  Transmission Date: 20171127
  Serious: Yes (Other)
  Sender: FDA-Public Use
  Company Number: US-SAOL THERAPEUTICS-2016SAO00168

PATIENT
  Sex: Male

DRUGS (5)
  1. BACLOFEN. [Suspect]
     Active Substance: BACLOFEN
     Indication: PAIN
     Dosage: 33.371 ?G, \DAY
     Route: 037
     Dates: start: 20151015
  2. BUPIVICAINE [Suspect]
     Active Substance: BUPIVACAINE
     Dosage: 3.708 MG, \DAY
     Route: 037
  3. BACLOFEN. [Suspect]
     Active Substance: BACLOFEN
     Indication: POST LAMINECTOMY SYNDROME
  4. MORPHINE [Suspect]
     Active Substance: MORPHINE
     Dosage: 12.977 MG, \DAY
     Route: 037
     Dates: start: 20151015
  5. CLONIDINE. [Suspect]
     Active Substance: CLONIDINE
     Dosage: 333.71 ?G, \DAY
     Route: 037
     Dates: start: 20151015

REACTIONS (4)
  - Incorrect route of drug administration [Recovered/Resolved]
  - Off label use [Unknown]
  - Pain [Recovered/Resolved]
  - Device occlusion [Recovered/Resolved]
